FAERS Safety Report 20421331 (Version 1)
Quarter: 2022Q1

REPORT INFORMATION
  Report Type: Spontaneous
  Country: US (occurrence: None)
  Receive Date: 20220203
  Receipt Date: 20220203
  Transmission Date: 20220424
  Serious: Yes (Other)
  Sender: FDA-Public Use
  Company Number: US-ACS-002174

PATIENT
  Sex: Female

DRUGS (3)
  1. CEFTRIAXONE [Suspect]
     Active Substance: CEFTRIAXONE
     Indication: Bronchitis
     Dosage: CEFTRIAXONE FOR INJECTION MIXED WITH LIDOCAINE 1% (HOSPIRA) 1 GRAM INTRAMUSCULAR
     Route: 030
     Dates: start: 20220125
  2. LIDOCAINE [Suspect]
     Active Substance: LIDOCAINE
     Indication: Bronchitis
     Dosage: CEFTRIAXONE FOR INJECTION MIXED WITH LIDOCAINE 1% (HOSPIRA) 1 GRAM INTRAMUSCULAR
     Route: 030
     Dates: start: 20220125
  3. DEPO-MEDROL [Suspect]
     Active Substance: METHYLPREDNISOLONE ACETATE
     Dosage: DEPOMEDROL 80MG IM
     Route: 030
     Dates: start: 20220125

REACTIONS (1)
  - Anaphylactic reaction [Unknown]

NARRATIVE: CASE EVENT DATE: 20220125
